FAERS Safety Report 9997219 (Version 1)
Quarter: 2014Q1

REPORT INFORMATION
  Report Type: Spontaneous
  Country: FR (occurrence: FR)
  Receive Date: 20140311
  Receipt Date: 20140311
  Transmission Date: 20141002
  Serious: Yes (Death)
  Sender: FDA-Public Use
  Company Number: FR-CELGENEUS-056-50794-14030311

PATIENT
  Age: 79 Year
  Sex: Male
  Weight: 59 kg

DRUGS (3)
  1. VIDAZA [Suspect]
     Indication: ACUTE MYELOID LEUKAEMIA
     Route: 058
     Dates: start: 20091018
  2. VIDAZA [Suspect]
     Route: 058
     Dates: end: 201106
  3. RED BLOOD CELLS [Concomitant]
     Indication: TRANSFUSION
     Route: 041

REACTIONS (3)
  - Infection [Fatal]
  - Ear infection [Unknown]
  - Acute myeloid leukaemia recurrent [Unknown]
